FAERS Safety Report 6073228-5 (Version None)
Quarter: 2009Q1

REPORT INFORMATION
  Report Type: 
  Country: None (occurrence: None)
  Receive Date: 20090211
  Receipt Date: 20081105
  Transmission Date: 20090719
  Serious: No
  Sender: FDA-Public Use
  Company Number: A0754998A

PATIENT
  Age: 2 Year
  Sex: Female

DRUGS (3)
  1. ALTABAX [Suspect]
     Indication: IMPETIGO
     Route: 061
  2. BACTROBAN [Suspect]
     Indication: IMPETIGO
     Route: 061
  3. NO CONCURRENT MEDICATION [Concomitant]

REACTIONS (1)
  - RASH [None]
